FAERS Safety Report 15067005 (Version 1)
Quarter: 2018Q2

REPORT INFORMATION
  Report Type: Spontaneous
  Country: US (occurrence: US)
  Receive Date: 20180626
  Receipt Date: 20180626
  Transmission Date: 20180711
  Serious: No
  Sender: FDA-Public Use
  Company Number: US-MYLANLABS-2018M1043025

PATIENT
  Sex: Female
  Weight: 57 kg

DRUGS (1)
  1. ESTRADIOL TRANSDERMAL SYSTEM [Suspect]
     Active Substance: ESTRADIOL
     Indication: OESTROGEN DEFICIENCY
     Dosage: UNK
     Route: 062

REACTIONS (3)
  - Application site swelling [Unknown]
  - Application site rash [Not Recovered/Not Resolved]
  - Application site dermatitis [Not Recovered/Not Resolved]
